APPROVED DRUG PRODUCT: PHENYTOIN SODIUM
Active Ingredient: PHENYTOIN SODIUM
Strength: 50MG/ML
Dosage Form/Route: INJECTABLE;INJECTION
Application: A089779 | Product #001
Applicant: MARSAM PHARMACEUTICALS LLC
Approved: Nov 27, 1992 | RLD: No | RS: No | Type: DISCN